FAERS Safety Report 4458485-0 (Version None)
Quarter: 2004Q3

REPORT INFORMATION
  Report Type: 
  Country: None (occurrence: None)
  Receive Date: 20040922
  Receipt Date: 20040413
  Transmission Date: 20050211
  Serious: Yes (Hospitalization)
  Sender: FDA-Public Use
  Company Number: US-SHR-04-023886

PATIENT
  Age: 44 Year
  Sex: Female

DRUGS (4)
  1. BETASERON [Suspect]
     Indication: MULTIPLE SCLEROSIS
     Dosage: 8 MIU, EVERY 2D, SUBCUTANEOUS
     Route: 058
     Dates: start: 20010101
  2. WELLBUTRIN [Concomitant]
  3. BACLOFEN [Concomitant]
  4. FEMHRT [Concomitant]

REACTIONS (2)
  - INJECTION SITE INDURATION [None]
  - INJECTION SITE WARMTH [None]
